FAERS Safety Report 14814664 (Version 2)
Quarter: 2018Q2

REPORT INFORMATION
  Report Type: Spontaneous
  Country: ES (occurrence: ES)
  Receive Date: 20180426
  Receipt Date: 20180504
  Transmission Date: 20180711
  Serious: Yes (Other)
  Sender: FDA-Public Use
  Company Number: ES-AMGEN-ESPSP2018054531

PATIENT
  Age: 71 Year
  Sex: Female

DRUGS (8)
  1. CALCIUM [Concomitant]
     Active Substance: CALCIUM
  2. LOSARTAN. [Concomitant]
     Active Substance: LOSARTAN
  3. EMCONCOR [Concomitant]
     Active Substance: BISOPROLOL FUMARATE
  4. OMACOR [Concomitant]
     Active Substance: OMEGA-3-ACID ETHYL ESTERS
  5. HIDROFEROL [Concomitant]
     Active Substance: CALCIFEDIOL
     Dosage: UNK, EACH 15 DAYS
  6. VITAMIN D [Concomitant]
     Active Substance: CHOLECALCIFEROL
  7. ORFIDAL [Concomitant]
     Active Substance: LORAZEPAM
  8. PROLIA [Suspect]
     Active Substance: DENOSUMAB
     Indication: OSTEOPOROSIS
     Dosage: UNK
     Route: 065

REACTIONS (10)
  - Blood parathyroid hormone increased [Unknown]
  - Thrombosis [Unknown]
  - Osteoporotic fracture [Unknown]
  - Osteoporosis [Recovering/Resolving]
  - Blister [Unknown]
  - Fall [Unknown]
  - Varicose vein [Unknown]
  - Pelvic fracture [Unknown]
  - Patella fracture [Unknown]
  - Vitamin D deficiency [Unknown]

NARRATIVE: CASE EVENT DATE: 2015
